APPROVED DRUG PRODUCT: ESTRADIOL
Active Ingredient: ESTRADIOL
Strength: 10MCG
Dosage Form/Route: TABLET;VAGINAL
Application: A205256 | Product #001 | TE Code: AB
Applicant: AMNEAL PHARMACEUTICALS
Approved: May 29, 2015 | RLD: No | RS: No | Type: RX